FAERS Safety Report 18453468 (Version 5)
Quarter: 2023Q1

REPORT INFORMATION
  Report Type: Spontaneous
  Country: JP (occurrence: JP)
  Receive Date: 20201102
  Receipt Date: 20230203
  Transmission Date: 20230418
  Serious: Yes (Hospitalization)
  Sender: FDA-Public Use
  Company Number: JP-ACTELION-A-CH2019-194157

PATIENT
  Age: 19 Year
  Sex: Female
  Weight: 49.4 kg

DRUGS (27)
  1. UPTRAVI [Suspect]
     Active Substance: SELEXIPAG
     Indication: Pulmonary arterial hypertension
     Dosage: 0.2 MG, BID
     Route: 048
     Dates: start: 20171204, end: 20171210
  2. UPTRAVI [Suspect]
     Active Substance: SELEXIPAG
     Dosage: 0.4 MG, BID
     Route: 048
     Dates: start: 20171211, end: 20171217
  3. UPTRAVI [Suspect]
     Active Substance: SELEXIPAG
     Dosage: 0.6 MG, BID
     Route: 048
     Dates: start: 20171218, end: 20171224
  4. UPTRAVI [Suspect]
     Active Substance: SELEXIPAG
     Dosage: 0.8 MG, BID
     Route: 048
     Dates: start: 20171225, end: 20180107
  5. UPTRAVI [Suspect]
     Active Substance: SELEXIPAG
     Dosage: 1 MG, BID
     Route: 048
     Dates: start: 20180108, end: 20180114
  6. UPTRAVI [Suspect]
     Active Substance: SELEXIPAG
     Dosage: 1.2 MG, BID
     Route: 048
     Dates: start: 20180115, end: 20180121
  7. UPTRAVI [Suspect]
     Active Substance: SELEXIPAG
     Dosage: 1.4 MG, BID
     Route: 048
     Dates: start: 20180122, end: 20180128
  8. UPTRAVI [Suspect]
     Active Substance: SELEXIPAG
     Dosage: 1.6 MG, BID
     Route: 048
     Dates: start: 20180129
  9. CEFTRIAXONE SODIUM [Suspect]
     Active Substance: CEFTRIAXONE SODIUM
     Indication: Pneumonia
     Route: 042
     Dates: start: 20190613, end: 20190703
  10. CLINDAMYCIN PHOSPHATE [Suspect]
     Active Substance: CLINDAMYCIN PHOSPHATE
     Indication: Pneumonia
     Route: 065
     Dates: start: 20190613, end: 20190703
  11. FUROSEMIDE [Concomitant]
     Active Substance: FUROSEMIDE
     Dosage: 15 MG, QD
     Dates: end: 20181108
  12. FUROSEMIDE [Concomitant]
     Active Substance: FUROSEMIDE
     Dosage: 30 MG, QD
     Dates: start: 20181109
  13. SPIRONOLACTONE [Concomitant]
     Active Substance: SPIRONOLACTONE
     Dosage: 10 MG, QD
     Dates: end: 20181108
  14. SPIRONOLACTONE [Concomitant]
     Active Substance: SPIRONOLACTONE
     Dosage: 20 MG, QD
     Dates: start: 20181109
  15. FLOLAN [Concomitant]
     Active Substance: EPOPROSTENOL SODIUM
     Indication: Pulmonary arterial hypertension
     Dosage: UNK
     Dates: end: 20180220
  16. AMBRISENTAN [Concomitant]
     Active Substance: AMBRISENTAN
     Indication: Pulmonary arterial hypertension
     Dosage: 2.5 MG, QD
  17. SENNOSIDES A AND B [Concomitant]
     Active Substance: SENNOSIDES A AND B
     Indication: Aortic dilatation
     Dosage: 24 MG, QD
     Dates: start: 20181029, end: 20181029
  18. POTASSIUM TARTRATE\SODIUM BICARBONATE [Concomitant]
     Active Substance: POTASSIUM TARTRATE\SODIUM BICARBONATE
     Indication: Aortic dilatation
     Dosage: 1 DF, QD
     Dates: start: 20181030, end: 20181030
  19. WARFARIN [Concomitant]
     Active Substance: WARFARIN
     Indication: Aortic dilatation
     Dosage: UNK
     Dates: start: 20181101
  20. TRAMCET [Concomitant]
     Active Substance: ACETAMINOPHEN\TRAMADOL
     Indication: Aortic dilatation
     Dosage: 3 DF, QD
     Dates: start: 20181030, end: 20181104
  21. LOXOPROFEN SODIUM [Concomitant]
     Active Substance: LOXOPROFEN SODIUM
     Indication: Aortic dilatation
     Dosage: 1 DF, QD
     Dates: start: 20181102, end: 20181120
  22. SAMSCA [Concomitant]
     Active Substance: TOLVAPTAN
     Indication: Aortic dilatation
     Dosage: 7.5 MG, QD
     Dates: start: 20181103, end: 20181113
  23. LEVOFLOXACIN [Concomitant]
     Active Substance: LEVOFLOXACIN
     Indication: Aortic dilatation
     Dosage: 500 MG, QD
     Dates: start: 20181104, end: 20181108
  24. ASPIRIN [Concomitant]
     Active Substance: ASPIRIN
     Dates: start: 20181201, end: 20190305
  25. BEPRIDIL [Concomitant]
     Active Substance: BEPRIDIL
     Dates: start: 20181201, end: 20190305
  26. BISOPROLOL FUMARATE [Concomitant]
     Active Substance: BISOPROLOL FUMARATE
     Dates: end: 20190327
  27. LASIX [Concomitant]
     Active Substance: FUROSEMIDE
     Dates: start: 20181109

REACTIONS (11)
  - Aortic valve incompetence [Recovered/Resolved]
  - Aortic dilatation [Recovered/Resolved]
  - Concomitant disease progression [Recovered/Resolved]
  - Atrial septal defect repair [Recovered/Resolved]
  - Aortic surgery [Recovered/Resolved]
  - Cardiac aneurysm [Recovered/Resolved]
  - Pneumonia [Recovered/Resolved]
  - Postpericardiotomy syndrome [Recovered/Resolved]
  - Atrial flutter [Recovered/Resolved]
  - Anaemia [Recovering/Resolving]
  - Neutrophil count decreased [Recovered/Resolved]

NARRATIVE: CASE EVENT DATE: 20180709
